FAERS Safety Report 6813617-1 (Version None)
Quarter: 2010Q3

REPORT INFORMATION
  Report Type: 
  Country: None (occurrence: None)
  Receive Date: 20100701
  Receipt Date: 20100621
  Transmission Date: 20110219
  Serious: Yes (Hospitalization, Other)
  Sender: FDA-Public Use
  Company Number: CA-PFIZER INC-2010077802

PATIENT
  Age: 42 Year
  Sex: Female

DRUGS (1)
  1. PHENYTOIN [Suspect]
     Dosage: 3600 MG, UNK

REACTIONS (2)
  - OVERDOSE [None]
  - STUPOR [None]
